FAERS Safety Report 26170117 (Version 1)
Quarter: 2025Q4

REPORT INFORMATION
  Report Type: Spontaneous
  Country: US (occurrence: US)
  Receive Date: 20251217
  Receipt Date: 20251217
  Transmission Date: 20260118
  Serious: No
  Sender: VERTEX
  Company Number: US-VERTEX PHARMACEUTICALS-2025-021219

PATIENT
  Age: 70 Year
  Sex: Female

DRUGS (5)
  1. JOURNAVX [Suspect]
     Active Substance: SUZETRIGINE
     Indication: Pain
     Dosage: UNK
     Route: 061
     Dates: start: 20251205, end: 20251208
  2. OXYCODONE [Concomitant]
     Active Substance: OXYCODONE
     Indication: Postoperative analgesia
     Dosage: UNK
     Dates: start: 20251205, end: 20251208
  3. METHYLPREDNISOLONE [Concomitant]
     Active Substance: METHYLPREDNISOLONE
     Indication: Postoperative analgesia
     Dosage: UNK
  4. TYLENOL [Concomitant]
     Active Substance: ACETAMINOPHEN
     Indication: Postoperative analgesia
     Dosage: UNK
  5. ASPIRIN [Concomitant]
     Active Substance: ASPIRIN
     Indication: Postoperative analgesia
     Dosage: UNK

REACTIONS (3)
  - Chest discomfort [Recovered/Resolved]
  - Restlessness [Recovered/Resolved]
  - Anxiety [Recovered/Resolved]

NARRATIVE: CASE EVENT DATE: 20251208
